FAERS Safety Report 24618415 (Version 2)
Quarter: 2025Q2

REPORT INFORMATION
  Report Type: Report from Study
  Country: US (occurrence: US)
  Receive Date: 20241114
  Receipt Date: 20250605
  Transmission Date: 20250717
  Serious: Yes (Other)
  Sender: SUNOVION
  Company Number: US-SMPA-2024SPA004772

PATIENT

DRUGS (2)
  1. ORGOVYX [Suspect]
     Active Substance: RELUGOLIX
     Indication: Prostate cancer
     Dosage: 120 MG, QD
     Route: 048
     Dates: start: 20230509
  2. XTANDI [Concomitant]
     Active Substance: ENZALUTAMIDE
     Indication: Product used for unknown indication
     Route: 065

REACTIONS (10)
  - Cataract [Unknown]
  - Blood testosterone decreased [Unknown]
  - Fall [Unknown]
  - Balance disorder [Unknown]
  - Limb injury [Unknown]
  - Cardiac disorder [Unknown]
  - Lung disorder [Unknown]
  - Hypertension [Unknown]
  - Fatigue [Unknown]
  - Incorrect dose administered [Unknown]
